FAERS Safety Report 7945714-1 (Version None)
Quarter: 2011Q4

REPORT INFORMATION
  Report Type: 
  Country: None (occurrence: None)
  Receive Date: 20111129
  Receipt Date: 20110627
  Transmission Date: 20120403
  Serious: Yes (Other)
  Sender: FDA-Public Use
  Company Number: US-MYLANLABS-2011S1013283

PATIENT
  Age: 49 Year
  Sex: Male
  Weight: 83.92 kg

DRUGS (5)
  1. CLONAZEPAM [Suspect]
     Indication: POST-TRAUMATIC STRESS DISORDER
     Route: 048
     Dates: start: 20110622, end: 20110623
  2. CLONAZEPAM [Suspect]
     Indication: ANXIETY
     Route: 048
     Dates: start: 20110622, end: 20110623
  3. NAPROXEN [Concomitant]
     Indication: BACK PAIN
  4. SEROQUEL [Concomitant]
     Indication: INSOMNIA
     Route: 048
  5. LIDOCAINE [Concomitant]
     Indication: BACK PAIN
     Dosage: TOPICAL CREAM

REACTIONS (1)
  - HYPERSENSITIVITY [None]
